FAERS Safety Report 14496362 (Version 1)
Quarter: 2018Q1

REPORT INFORMATION
  Report Type: Spontaneous
  Country: US (occurrence: US)
  Receive Date: 20180207
  Receipt Date: 20180207
  Transmission Date: 20180509
  Serious: No
  Sender: FDA-Public Use
  Company Number: PHEH2018US003746

PATIENT
  Sex: Male

DRUGS (4)
  1. COSENTYX [Suspect]
     Active Substance: SECUKINUMAB
     Indication: PRODUCT USED FOR UNKNOWN INDICATION
     Route: 065
  2. PERCOCET [Concomitant]
     Active Substance: ACETAMINOPHEN\OXYCODONE HYDROCHLORIDE
     Indication: PRODUCT USED FOR UNKNOWN INDICATION
     Route: 065
  3. HUMIRA [Suspect]
     Active Substance: ADALIMUMAB
     Indication: PSORIATIC ARTHROPATHY
     Dosage: 40 MG, UNK (1 IN 2 WEEKS)
     Route: 058
     Dates: start: 2017
  4. TRINTELLIX [Concomitant]
     Active Substance: VORTIOXETINE HYDROBROMIDE
     Indication: PRODUCT USED FOR UNKNOWN INDICATION
     Route: 065

REACTIONS (9)
  - Fatigue [Unknown]
  - Oesophagitis [Unknown]
  - Dermatitis allergic [Unknown]
  - Influenza like illness [Recovered/Resolved]
  - Influenza like illness [Not Recovered/Not Resolved]
  - Drug hypersensitivity [Unknown]
  - Allergic oedema [Unknown]
  - Pyrexia [Recovering/Resolving]
  - Diarrhoea [Unknown]

NARRATIVE: CASE EVENT DATE: 2017
